FAERS Safety Report 7614148-1 (Version None)
Quarter: 2011Q3

REPORT INFORMATION
  Report Type: 
  Country: None (occurrence: None)
  Receive Date: 20110708
  Receipt Date: 20110624
  Transmission Date: 20111222
  Serious: Yes (Other)
  Sender: FDA-Public Use
  Company Number: AUR-APL-2011-03490

PATIENT
  Age: 58 Year
  Sex: Female
  Weight: 136 kg

DRUGS (5)
  1. VENLAFAXINE [Suspect]
     Indication: PRODUCT USED FOR UNKNOWN INDICATION
  2. EFFEXOR XR [Suspect]
     Indication: DEPRESSION
     Dosage: 150 MG (150 MG, 1 IN 1 D), ORAL
     Route: 048
     Dates: start: 20020101, end: 20090101
  3. EFFEXOR XR [Suspect]
     Indication: ANXIETY
     Dosage: 150 MG (150 MG, 1 IN 1 D), ORAL
     Route: 048
     Dates: start: 20020101, end: 20090101
  4. VENLAFAXINE [Suspect]
     Indication: DEPRESSION
     Dosage: 75 MG (37.5 MG, 2 IN 1 D), ORAL
     Route: 048
     Dates: start: 20090301
  5. VENLAFAXINE [Suspect]
     Indication: ANXIETY
     Dosage: 75 MG (37.5 MG, 2 IN 1 D), ORAL
     Route: 048
     Dates: start: 20090301

REACTIONS (8)
  - PRODUCT SUBSTITUTION ISSUE [None]
  - ABDOMINAL DISCOMFORT [None]
  - DYSPEPSIA [None]
  - CONFUSIONAL STATE [None]
  - LOSS OF EMPLOYMENT [None]
  - OSTEOARTHRITIS [None]
  - GASTRIC DISORDER [None]
  - MENTAL DISORDER [None]
